FAERS Safety Report 6703527-2 (Version None)
Quarter: 2010Q2

REPORT INFORMATION
  Report Type: 
  Country: None (occurrence: None)
  Receive Date: 20100430
  Receipt Date: 20100420
  Transmission Date: 20101027
  Serious: Yes (Other)
  Sender: FDA-Public Use
  Company Number: PHHY2010FR20297

PATIENT
  Sex: Female
  Weight: 92 kg

DRUGS (7)
  1. RASILEZ [Suspect]
     Indication: HYPERTENSION
     Dosage: 150 MG, UNK
     Dates: start: 20100311, end: 20100325
  2. ZOCOR [Concomitant]
     Indication: BLOOD CHOLESTEROL
     Dosage: 20, 1DF DAILY
  3. NISISCO [Concomitant]
     Indication: HYPERTENSION
     Dosage: 160/25, 1 DF DAILY
     Dates: start: 20100311
  4. GLUCOPHAGE [Concomitant]
     Indication: TYPE 2 DIABETES MELLITUS
     Dosage: 1000, 3 DF DAILY
  5. COVERAM [Concomitant]
     Indication: HYPERTENSION
     Dosage: 10/10, 1DF DAILY
  6. BYETTA [Concomitant]
     Indication: TYPE 2 DIABETES MELLITUS
     Dosage: 1 DF, DAILY
  7. TEMERIT [Concomitant]
     Indication: HYPERTENSION
     Dosage: 5, 1DF DAILY

REACTIONS (7)
  - ALANINE AMINOTRANSFERASE INCREASED [None]
  - ASPARTATE AMINOTRANSFERASE INCREASED [None]
  - BLOOD ALKALINE PHOSPHATASE INCREASED [None]
  - BLOOD BILIRUBIN INCREASED [None]
  - GAMMA-GLUTAMYLTRANSFERASE INCREASED [None]
  - HEPATIC STEATOSIS [None]
  - HEPATOMEGALY [None]
